FAERS Safety Report 18712485 (Version 4)
Quarter: 2021Q1

REPORT INFORMATION
  Report Type: Spontaneous
  Country: IT (occurrence: IT)
  Receive Date: 20210107
  Receipt Date: 20210223
  Transmission Date: 20210419
  Serious: Yes (Life-Threatening, Hospitalization, Other)
  Sender: FDA-Public Use
  Company Number: NVSC2021IT002663

PATIENT
  Age: 57 Year
  Sex: Female

DRUGS (1)
  1. OLANZAPINE. [Suspect]
     Active Substance: OLANZAPINE
     Indication: SCHIZOPHRENIA
     Dosage: 10 MG, QD
     Route: 065

REACTIONS (9)
  - Portal vein thrombosis [Recovering/Resolving]
  - Colitis ischaemic [Recovering/Resolving]
  - Acute kidney injury [Recovering/Resolving]
  - Systemic infection [Recovering/Resolving]
  - Pulmonary embolism [Recovering/Resolving]
  - Lethargy [Unknown]
  - Weight increased [Unknown]
  - Mesenteric vein thrombosis [Recovering/Resolving]
  - Intestinal ischaemia [Recovering/Resolving]
